FAERS Safety Report 8554120-0 (Version None)
Quarter: 2012Q3

REPORT INFORMATION
  Report Type: 
  Country: None (occurrence: None)
  Receive Date: 20120731
  Receipt Date: 20120725
  Transmission Date: 20120928
  Serious: Yes (Hospitalization)
  Sender: FDA-Public Use
  Company Number: PHHO2011US13311

PATIENT
  Sex: Female
  Weight: 72 kg

DRUGS (13)
  1. ZOFRAN [Concomitant]
  2. CEPHALEXIN [Concomitant]
     Indication: URINARY TRACT INFECTION
  3. LOTREL [Concomitant]
  4. DULCOLAX [Concomitant]
  5. KEFLEX [Concomitant]
  6. GILENYA [Suspect]
     Indication: MULTIPLE SCLEROSIS
     Dosage: 5 MG, QD
     Route: 048
     Dates: start: 20110620, end: 20110623
  7. TYLENOL (CAPLET) [Concomitant]
     Dosage: UNK
  8. REBIF [Concomitant]
  9. DETROL [Concomitant]
  10. COLACE [Concomitant]
  11. TOPROL-XL [Concomitant]
  12. SENOKOT [Concomitant]
  13. MILK OF MAGNESIA TAB [Concomitant]

REACTIONS (4)
  - CHEST PAIN [None]
  - PALPITATIONS [None]
  - DYSPNOEA [None]
  - ANXIETY [None]
